FAERS Safety Report 4514344-6 (Version None)
Quarter: 2004Q4

REPORT INFORMATION
  Report Type: 
  Country: None (occurrence: None)
  Receive Date: 20040928
  Receipt Date: 20040708
  Transmission Date: 20050328
  Serious: No
  Sender: FDA-Public Use
  Company Number: 04P-163-0266325-00

PATIENT
  Age: 46 Year
  Sex: Female
  Weight: 79.3795 kg

DRUGS (5)
  1. HUMIRA [Suspect]
     Dosage: 40 MG, 1 IN 2 WK, SUBCUTANEOUS
     Dates: start: 20040201, end: 20040301
  2. HUMIRA [Suspect]
     Dosage: 40 MG, 1 IN 2 WK, SUBCUTANEOUS
     Dates: start: 20040401, end: 20040604
  3. DOXYCYCLINE [Suspect]
     Indication: TOOTHACHE
     Dosage: PER ORAL
     Route: 048
     Dates: start: 20040301, end: 20040301
  4. BUCINDOLOL HYDROCHLORIDE [Concomitant]
  5. PREDNISONE [Concomitant]

REACTIONS (6)
  - DRUG INEFFECTIVE [None]
  - NASOPHARYNGITIS [None]
  - PRODUCTIVE COUGH [None]
  - RASH [None]
  - SINUSITIS [None]
  - TOOTHACHE [None]
